FAERS Safety Report 9748114 (Version 2)
Quarter: 2014Q1

REPORT INFORMATION
  Report Type: Spontaneous
  Country: US (occurrence: US)
  Receive Date: 20131212
  Receipt Date: 20140218
  Transmission Date: 20141002
  Serious: No
  Sender: FDA-Public Use
  Company Number: US-PFIZER INC-2013353609

PATIENT
  Sex: Female

DRUGS (2)
  1. NEURONTIN [Suspect]
     Dosage: UNK
  2. LYRICA [Suspect]
     Dosage: UNK

REACTIONS (7)
  - Drug ineffective [Unknown]
  - Malaise [Unknown]
  - Swelling [Unknown]
  - Oedema [Unknown]
  - Diabetic neuropathy [Unknown]
  - Nerve compression [Unknown]
  - Back disorder [Unknown]
